FAERS Safety Report 5529669-5 (Version None)
Quarter: 2007Q4

REPORT INFORMATION
  Report Type: 
  Country: None (occurrence: None)
  Receive Date: 20071129
  Receipt Date: 20071119
  Transmission Date: 20080405
  Serious: Yes (Other)
  Sender: FDA-Public Use
  Company Number: GB-PFIZER INC-2007097598

PATIENT
  Sex: Female

DRUGS (1)
  1. DEPO-PROVERA SUSPENSION/INJ [Suspect]
     Indication: CONTRACEPTION
     Route: 030

REACTIONS (3)
  - ABORTION SPONTANEOUS [None]
  - DRUG INEFFECTIVE [None]
  - UNINTENDED PREGNANCY [None]
